FAERS Safety Report 10581912 (Version 1)
Quarter: 2014Q4

REPORT INFORMATION
  Report Type: Spontaneous
  Country: US (occurrence: US)
  Receive Date: 20141113
  Receipt Date: 20141113
  Transmission Date: 20150529
  Serious: No
  Sender: FDA-Public Use
  Company Number: US-PFIZER INC-2014311087

PATIENT
  Age: 55 Year
  Sex: Female
  Weight: 88 kg

DRUGS (2)
  1. NEURONTIN [Suspect]
     Active Substance: GABAPENTIN
     Indication: MIGRAINE
     Dosage: 100 MG, (100MG 1-2 CAPSULES UP TO FOUR TIMES A DAY)
     Route: 048
     Dates: start: 20141021, end: 201411
  2. SYNTHROID [Concomitant]
     Active Substance: LEVOTHYROXINE SODIUM
     Dosage: 150 MG, 1X/DAY
     Route: 048

REACTIONS (8)
  - Feeling abnormal [Unknown]
  - Drug ineffective for unapproved indication [Unknown]
  - Impaired driving ability [Unknown]
  - Drug intolerance [Unknown]
  - Malaise [Unknown]
  - Sedation [Unknown]
  - Impaired work ability [Unknown]
  - Fatigue [Unknown]

NARRATIVE: CASE EVENT DATE: 201410
